FAERS Safety Report 25740051 (Version 1)
Quarter: 2025Q3

REPORT INFORMATION
  Report Type: Spontaneous
  Country: US (occurrence: US)
  Receive Date: 20250829
  Receipt Date: 20250829
  Transmission Date: 20251021
  Serious: Yes (Other)
  Sender: MYLAN
  Company Number: US-MYLANLABS-2025M1073089

PATIENT
  Age: 19 Year
  Sex: Female

DRUGS (3)
  1. PREDNISONE [Suspect]
     Active Substance: PREDNISONE
     Indication: Antiinflammatory therapy
  2. PREDNISONE [Suspect]
     Active Substance: PREDNISONE
     Indication: Allergic bronchopulmonary mycosis
  3. ITRACONAZOLE [Suspect]
     Active Substance: ITRACONAZOLE
     Indication: Allergic bronchopulmonary mycosis

REACTIONS (1)
  - Drug ineffective [Unknown]
